FAERS Safety Report 13869155 (Version 4)
Quarter: 2017Q3

REPORT INFORMATION
  Report Type: Report from Study
  Country: TR (occurrence: TR)
  Receive Date: 20170815
  Receipt Date: 20170925
  Transmission Date: 20171127
  Serious: Yes (Hospitalization)
  Sender: FDA-Public Use
  Company Number: TR-TAIHO ONCOLOGY INC-US-2017-00158

PATIENT
  Age: 53 Year
  Sex: Male

DRUGS (7)
  1. CIPROFLOXACIN. [Suspect]
     Active Substance: CIPROFLOXACIN
     Indication: NEUTROPENIA
     Dates: start: 20170622, end: 20170627
  2. LOMOTIL [Suspect]
     Active Substance: ATROPINE SULFATE\DIPHENOXYLATE HYDROCHLORIDE
     Indication: DIARRHOEA
     Dates: start: 20170621, end: 20170623
  3. LASIX [Concomitant]
     Active Substance: FUROSEMIDE
     Indication: ASCITES
     Dosage: NI
  4. TAS-102 [Suspect]
     Active Substance: TIPIRACIL HYDROCHLORIDE\TRIFLURIDINE
     Indication: METASTATIC GASTRIC CANCER
     Dosage: CURRENT CYCLE 1
     Route: 048
     Dates: start: 20170606, end: 20170617
  5. DOLOREX [Concomitant]
     Indication: SUPPLEMENTATION THERAPY
     Dates: start: 20170621
  6. LANSOR [Concomitant]
     Active Substance: LANSOPRAZOLE
     Indication: PROPHYLAXIS
     Dates: start: 201107
  7. ANDOREX [Concomitant]
     Indication: SUPPLEMENTATION THERAPY
     Dates: start: 20170621

REACTIONS (4)
  - Diarrhoea [Recovered/Resolved]
  - Ileus [Not Recovered/Not Resolved]
  - Hypoalbuminaemia [Not Recovered/Not Resolved]
  - Neutropenia [Recovered/Resolved]

NARRATIVE: CASE EVENT DATE: 20170622
